FAERS Safety Report 8784786 (Version 1)
Quarter: 2012Q4

REPORT INFORMATION
  Report Type: Spontaneous
  Country: SE (occurrence: None)
  Receive Date: 20120828
  Receipt Date: 20120828
  Transmission Date: 20130627
  Serious: Yes (Life-Threatening, Hospitalization)
  Sender: FDA-Public Use
  Company Number: DSA_59039_2012

PATIENT
  Age: 81 Year
  Sex: Male

DRUGS (9)
  1. RENITEC [Suspect]
     Route: 048
     Dates: end: 20120617
  2. METFORMIN (METFORMIN) [Suspect]
     Route: 048
     Dates: end: 20120617
  3. XALATAN [Concomitant]
  4. SIMVASTATIN [Concomitant]
  5. ALPHAGAN [Concomitant]
  6. TROMBYL [Concomitant]
  7. AZOPT [Concomitant]
  8. LOGIMAX [Concomitant]
  9. PANODIL [Concomitant]

REACTIONS (5)
  - Lactic acidosis [None]
  - Confusional state [None]
  - Renal failure acute [None]
  - Hyperkalaemia [None]
  - Fatigue [None]
